FAERS Safety Report 11540331 (Version 1)
Quarter: 2015Q3

REPORT INFORMATION
  Report Type: Spontaneous
  Country: US (occurrence: US)
  Receive Date: 20150923
  Receipt Date: 20150923
  Transmission Date: 20151125
  Serious: No
  Sender: FDA-Public Use
  Company Number: US-BEH-2014043820

PATIENT
  Sex: Female
  Weight: 90 kg

DRUGS (13)
  1. LEVOCETIRIZINE [Concomitant]
     Active Substance: LEVOCETIRIZINE
  2. IBUPROFEN. [Concomitant]
     Active Substance: IBUPROFEN
  3. SYMBICORT [Concomitant]
     Active Substance: BUDESONIDE\FORMOTEROL FUMARATE DIHYDRATE
  4. CYCLOBENZAPRINE [Concomitant]
     Active Substance: CYCLOBENZAPRINE
  5. EPIPEN [Concomitant]
     Active Substance: EPINEPHRINE
  6. ATROVENT [Concomitant]
     Active Substance: IPRATROPIUM BROMIDE
  7. NORMAL SALINE [Concomitant]
     Active Substance: SODIUM CHLORIDE
  8. RANITIDINE [Concomitant]
     Active Substance: RANITIDINE\RANITIDINE HYDROCHLORIDE
  9. PROAIR HFA [Concomitant]
     Active Substance: ALBUTEROL SULFATE
  10. PRIVIGEN [Suspect]
     Active Substance: HUMAN IMMUNOGLOBULIN G
     Indication: IMMUNODEFICIENCY COMMON VARIABLE
     Dosage: 20 GM VIAL
     Route: 042
  11. PREDNISONE. [Concomitant]
     Active Substance: PREDNISONE
  12. DIPHENHYDRAMINE. [Concomitant]
     Active Substance: DIPHENHYDRAMINE
  13. SODIUM CHLORIDE. [Concomitant]
     Active Substance: SODIUM CHLORIDE

REACTIONS (3)
  - Ear infection [Unknown]
  - Headache [Unknown]
  - Sinusitis [Unknown]
